FAERS Safety Report 13384286 (Version 1)
Quarter: 2017Q1

REPORT INFORMATION
  Report Type: Spontaneous
  Country: US (occurrence: US)
  Receive Date: 20170329
  Receipt Date: 20170329
  Transmission Date: 20170429
  Serious: Yes (Other)
  Sender: FDA-Public Use
  Company Number: None

PATIENT
  Age: 70 Year
  Sex: Male
  Weight: 85.55 kg

DRUGS (1)
  1. LORAZEPAM. [Suspect]
     Active Substance: LORAZEPAM
     Indication: ALCOHOL WITHDRAWAL SYNDROME
     Route: 042
     Dates: start: 20170206, end: 20170208

REACTIONS (5)
  - Tachypnoea [None]
  - Mental status changes [None]
  - Hypertension [None]
  - Tachycardia [None]
  - Encephalopathy [None]

NARRATIVE: CASE EVENT DATE: 20170208
